FAERS Safety Report 5119644-7 (Version None)
Quarter: 2006Q4

REPORT INFORMATION
  Report Type: 
  Country: None (occurrence: None)
  Receive Date: 20061003
  Receipt Date: 20060918
  Transmission Date: 20070319
  Serious: Yes (Other)
  Sender: FDA-Public Use
  Company Number: BR-ROCHE-463735

PATIENT
  Age: 61 Year
  Sex: Female
  Weight: 130 kg

DRUGS (2)
  1. XELODA [Suspect]
     Indication: DRUG USE FOR UNKNOWN INDICATION
     Route: 048
     Dates: start: 20060911
  2. UNSPECIFIED MEDICATION [Concomitant]
     Indication: DIARRHOEA

REACTIONS (3)
  - DYSPNOEA [None]
  - HALLUCINATION [None]
  - PULMONARY OEDEMA [None]
